FAERS Safety Report 16825305 (Version 2)
Quarter: 2019Q4

REPORT INFORMATION
  Report Type: Spontaneous
  Country: TW (occurrence: TW)
  Receive Date: 20190919
  Receipt Date: 20191128
  Transmission Date: 20200122
  Serious: Yes (Hospitalization, Other)
  Sender: FDA-Public Use
  Company Number: TW-AMGEN-TWNSP2019154599

PATIENT
  Age: 53 Year
  Sex: Female

DRUGS (1)
  1. ENBREL [Suspect]
     Active Substance: ETANERCEPT
     Indication: PSORIATIC ARTHROPATHY
     Dosage: 25 MILLIGRAM, EVERY 6 DAYS
     Route: 058
     Dates: start: 20100827, end: 20190908

REACTIONS (3)
  - Precancerous lesion [Unknown]
  - Pulmonary mass [Recovering/Resolving]
  - Intentional product misuse [Unknown]
